FAERS Safety Report 15002151 (Version 2)
Quarter: 2018Q2

REPORT INFORMATION
  Report Type: Spontaneous
  Country: BR (occurrence: BR)
  Receive Date: 20180612
  Receipt Date: 20180626
  Transmission Date: 20180711
  Serious: No
  Sender: FDA-Public Use
  Company Number: BR-TAKEDA-2018TUS019383

PATIENT
  Sex: Female

DRUGS (1)
  1. DEXILANT [Suspect]
     Active Substance: DEXLANSOPRAZOLE
     Indication: GASTRITIS
     Dosage: 60 MG, UNK
     Route: 048

REACTIONS (3)
  - Hepatitis acute [Recovered/Resolved]
  - Cholelithiasis [Recovered/Resolved]
  - Off label use [Unknown]
